FAERS Safety Report 5687951-5 (Version None)
Quarter: 2008Q1

REPORT INFORMATION
  Report Type: 
  Country: None (occurrence: None)
  Receive Date: 20080328
  Receipt Date: 20070112
  Transmission Date: 20080703
  Serious: No
  Sender: FDA-Public Use
  Company Number: US-BAYER-US-2006-018671

PATIENT
  Age: 30 Year
  Sex: Female
  Weight: 102 kg

DRUGS (1)
  1. MIRENA [Suspect]
     Indication: CONTRACEPTION
     Route: 015
     Dates: start: 20060401

REACTIONS (5)
  - ALOPECIA [None]
  - BREAST PAIN [None]
  - BREAST TENDERNESS [None]
  - GALACTORRHOEA [None]
  - URINARY HESITATION [None]
